FAERS Safety Report 21160035 (Version 1)
Quarter: 2022Q3

REPORT INFORMATION
  Report Type: Spontaneous
  Country: US (occurrence: US)
  Receive Date: 20220802
  Receipt Date: 20220802
  Transmission Date: 20221027
  Serious: Yes (Other)
  Sender: FDA-Public Use
  Company Number: US-BAYER-2022A104947

PATIENT
  Sex: Male

DRUGS (2)
  1. XARELTO [Suspect]
     Active Substance: RIVAROXABAN
  2. ASPIRIN [Suspect]
     Active Substance: ASPIRIN
     Dosage: 81 MG
     Route: 048

REACTIONS (1)
  - Haemorrhage [Unknown]
